FAERS Safety Report 6661953-4 (Version None)
Quarter: 2010Q1

REPORT INFORMATION
  Report Type: 
  Country: None (occurrence: None)
  Receive Date: 20100331
  Receipt Date: 20091026
  Transmission Date: 20100710
  Serious: Yes (Hospitalization)
  Sender: FDA-Public Use
  Company Number: US-BRISTOL-MYERS SQUIBB COMPANY-14826010

PATIENT
  Age: 68 Year
  Sex: Male

DRUGS (1)
  1. ERBITUX [Suspect]
     Indication: HEAD AND NECK CANCER
     Dosage: 400MG/M2 1ST DOSE 250 MG/M2 1ST DOSE WEEKLY
     Route: 042
     Dates: start: 20091021

REACTIONS (1)
  - INFUSION RELATED REACTION [None]
